FAERS Safety Report 6537383-2 (Version None)
Quarter: 2010Q1

REPORT INFORMATION
  Report Type: 
  Country: None (occurrence: None)
  Receive Date: 20100110
  Receipt Date: 20091229
  Transmission Date: 20100710
  Serious: Yes (Other)
  Sender: FDA-Public Use
  Company Number: 230001J09TUN

PATIENT
  Sex: Female

DRUGS (1)
  1. REBIF [Suspect]
     Indication: MULTIPLE SCLEROSIS
     Dosage: 44, 3 IN 1 WEEKS, SUBCUTANEOUS
     Route: 058
     Dates: start: 20071001

REACTIONS (3)
  - PSORIASIS [None]
  - SCAB [None]
  - SCAR [None]
